FAERS Safety Report 5195745-2 (Version None)
Quarter: 2007Q1

REPORT INFORMATION
  Report Type: 
  Country: None (occurrence: None)
  Receive Date: 20070102
  Receipt Date: 20061226
  Transmission Date: 20070707
  Serious: Yes (Other)
  Sender: FDA-Public Use
  Company Number: 2006UW28531

PATIENT
  Sex: Male

DRUGS (1)
  1. SEROQUEL [Suspect]
     Dosage: STARTER PACK
     Route: 048
     Dates: start: 20061224

REACTIONS (3)
  - BALANCE DISORDER [None]
  - FALL [None]
  - FEELING ABNORMAL [None]
